FAERS Safety Report 20903212 (Version 2)
Quarter: 2022Q3

REPORT INFORMATION
  Report Type: Spontaneous
  Country: US (occurrence: US)
  Receive Date: 20220601
  Receipt Date: 20220707
  Transmission Date: 20221027
  Serious: No
  Sender: FDA-Public Use
  Company Number: US-009507513-2205USA008050

PATIENT
  Age: 5 Year
  Sex: Male

DRUGS (2)
  1. PROQUAD [Suspect]
     Active Substance: MEASLES VIRUS STRAIN ENDERS^ ATTENUATED EDMONSTON LIVE ANTIGEN\MUMPS VIRUS STRAIN B LEVEL JERYL LYNN
     Indication: Prophylaxis
     Route: 058
     Dates: start: 20220525
  2. STERILE DILUENT (WATER) [Suspect]
     Active Substance: WATER
     Indication: Prophylaxis

REACTIONS (3)
  - Accidental underdose [Unknown]
  - Product leakage [Unknown]
  - No adverse event [Unknown]

NARRATIVE: CASE EVENT DATE: 20220525
